FAERS Safety Report 12771995 (Version 2)
Quarter: 2017Q2

REPORT INFORMATION
  Report Type: Spontaneous
  Country: US (occurrence: US)
  Receive Date: 20160922
  Receipt Date: 20170511
  Transmission Date: 20170830
  Serious: Yes (Disabling)
  Sender: FDA-Public Use
  Company Number: US-ACORDA-ACO_128260_2016

PATIENT

DRUGS (1)
  1. AMPYRA [Suspect]
     Active Substance: DALFAMPRIDINE
     Dosage: UNK
     Route: 065

REACTIONS (5)
  - Dysstasia [Unknown]
  - Therapy cessation [Unknown]
  - Abasia [Unknown]
  - Therapeutic response unexpected [Unknown]
  - Multiple sclerosis [Unknown]
